FAERS Safety Report 24662516 (Version 1)
Quarter: 2024Q4

REPORT INFORMATION
  Report Type: Spontaneous
  Country: US (occurrence: None)
  Receive Date: 20241125
  Receipt Date: 20241125
  Transmission Date: 20250114
  Serious: No
  Sender: AXSOME THERAPEUTICS, INC.
  Company Number: US-ARIS GLOBAL-AXS202409-001567

PATIENT
  Age: 68 Year
  Sex: Male

DRUGS (5)
  1. AUVELITY [Suspect]
     Active Substance: BUPROPION HYDROCHLORIDE\DEXTROMETHORPHAN HYDROBROMIDE
     Indication: Product used for unknown indication
     Route: 065
     Dates: start: 202212
  2. AUVELITY [Suspect]
     Active Substance: BUPROPION HYDROCHLORIDE\DEXTROMETHORPHAN HYDROBROMIDE
     Route: 065
  3. SPRAVATO [Suspect]
     Active Substance: ESKETAMINE
     Indication: Product used for unknown indication
     Dosage: UNK
     Route: 065
  4. MEFENAMIC ACID\TRANEXAMIC ACID [Suspect]
     Active Substance: MEFENAMIC ACID\TRANEXAMIC ACID
     Indication: Product used for unknown indication
     Dosage: UNK
     Route: 065
  5. LABETALOL [Concomitant]
     Active Substance: LABETALOL
     Indication: Heart rate irregular
     Dosage: UNK
     Route: 065

REACTIONS (4)
  - Blood pressure fluctuation [Recovered/Resolved]
  - Mental disorder [Unknown]
  - Anxiety [Unknown]
  - Therapeutic product effect decreased [Unknown]
